FAERS Safety Report 9319792 (Version 1)
Quarter: 2013Q2

REPORT INFORMATION
  Report Type: Spontaneous
  Country: US (occurrence: None)
  Receive Date: 20130529
  Receipt Date: 20130529
  Transmission Date: 20140414
  Serious: Yes (Hospitalization)
  Sender: FDA-Public Use
  Company Number: None

PATIENT
  Age: 65 Year
  Sex: Male

DRUGS (5)
  1. XTANDI [Suspect]
     Indication: PROSTATE CANCER
     Route: 048
     Dates: start: 20130510, end: 20130512
  2. TYLENOL [Concomitant]
  3. CLARITIN [Concomitant]
  4. COLACE [Concomitant]
  5. TYLENOL 3 [Concomitant]

REACTIONS (5)
  - Pain [None]
  - Back pain [None]
  - Abdominal pain upper [None]
  - Pneumonia [None]
  - Platelet count decreased [None]
